FAERS Safety Report 6146522-7 (Version None)
Quarter: 2009Q2

REPORT INFORMATION
  Report Type: 
  Country: None (occurrence: None)
  Receive Date: 20090407
  Receipt Date: 20090303
  Transmission Date: 20091009
  Serious: Yes (Other)
  Sender: FDA-Public Use
  Company Number: JP-PFIZER INC-2009185315

PATIENT

DRUGS (6)
  1. CHAMPIX [Suspect]
     Indication: NICOTINE DEPENDENCE
     Dosage: 0.5 MG, 1X/DAY
     Route: 048
     Dates: start: 20090218, end: 20090220
  2. CHAMPIX [Suspect]
     Dosage: 0.5 MG, 2X/DAY
     Route: 048
     Dates: start: 20090221, end: 20090224
  3. NAUZELIN [Suspect]
     Dosage: 10 MG, 1X/DAY
     Route: 048
     Dates: start: 20090218, end: 20090220
  4. NAUZELIN [Suspect]
     Dosage: 20 MG, 2X/DAY
     Dates: start: 20090221, end: 20090224
  5. BLOPRESS [Concomitant]
     Route: 048
  6. NORVASC [Concomitant]
     Dosage: UNK
     Route: 048

REACTIONS (4)
  - ALOPECIA [None]
  - CONJUNCTIVAL HYPERAEMIA [None]
  - ERYTHEMA MULTIFORME [None]
  - RASH GENERALISED [None]
